FAERS Safety Report 5070330-1 (Version None)
Quarter: 2006Q3

REPORT INFORMATION
  Report Type: 
  Country: None (occurrence: None)
  Receive Date: 20060731
  Receipt Date: 20060719
  Transmission Date: 20061208
  Serious: Yes (Hospitalization)
  Sender: FDA-Public Use
  Company Number: 2006086107

PATIENT
  Age: 74 Year
  Sex: Male

DRUGS (10)
  1. TAHOR (ATORVASTATIN) [Suspect]
     Indication: DRUG USE FOR UNKNOWN INDICATION
     Dosage: 1 IN 1 D ORAL
     Route: 048
  2. HEPARIN CALCIUM [Suspect]
     Indication: DRUG USE FOR UNKNOWN INDICATION
     Dosage: 1.4 ML (1 D) SUBCUTANEOUS
     Route: 058
     Dates: start: 20060529, end: 20060603
  3. ACETYLSALICYLATE LYSINE (ACETYLSALICYLATE LYSINE) [Suspect]
     Indication: DRUG USE FOR UNKNOWN INDICATION
     Dosage: 20 MG (20 MG, 1 IN 1 D) ORAL
     Route: 048
     Dates: end: 20060606
  4. FLUINDIONE (FLUINDIONE) [Suspect]
     Indication: DRUG USE FOR UNKNOWN INDICATION
     Dosage: 20 MG (20 MG, 1 IN 1 D) ORAL
     Route: 048
     Dates: end: 20060606
  5. AMOXI-CLAVULANICO (AMOXICILLIN, CLAVULANIC ACID) [Suspect]
     Indication: DRUG USE FOR UNKNOWN INDICATION
     Dosage: 1 GM/200MG (3 IN 1 D) INTRAVENOUS
     Route: 042
     Dates: start: 20060531, end: 20060614
  6. OFLOXACIN [Concomitant]
  7. RAMIPRIL [Concomitant]
  8. CELIPROLOL [Concomitant]
  9. CLONAZEPAM [Concomitant]
  10. INSULIN GLARGINE [Concomitant]

REACTIONS (8)
  - ANAEMIA [None]
  - DIARRHOEA [None]
  - DRUG INTERACTION [None]
  - DRUG TOXICITY [None]
  - GENERAL PHYSICAL HEALTH DETERIORATION [None]
  - INTERNATIONAL NORMALISED RATIO INCREASED [None]
  - MUSCLE HAEMORRHAGE [None]
  - PERIPHERAL PARALYSIS [None]
